FAERS Safety Report 8366250-7 (Version None)
Quarter: 2012Q2

REPORT INFORMATION
  Report Type: 
  Country: None (occurrence: None)
  Receive Date: 20120517
  Receipt Date: 20120511
  Transmission Date: 20120825
  Serious: Yes (Hospitalization)
  Sender: FDA-Public Use
  Company Number: PHHY2012DE027496

PATIENT
  Sex: Female
  Weight: 82 kg

DRUGS (13)
  1. METFORMIN HCL [Concomitant]
     Indication: TYPE 2 DIABETES MELLITUS
     Dosage: 200 MG/DAY
     Route: 048
     Dates: start: 20110804
  2. BISOPROLOL FUMARATE [Concomitant]
     Indication: HYPERTENSION
     Dosage: 5 MG/DAY
     Route: 048
     Dates: start: 20110804
  3. RASILEZ [Suspect]
     Indication: HYPERTENSION
     Dosage: 300 MG/DAY
     Route: 048
     Dates: start: 20081118, end: 20120125
  4. ASPIRIN [Concomitant]
     Indication: CEREBROVASCULAR ACCIDENT
     Dosage: 100 MG /DAY
     Route: 048
     Dates: start: 20110804
  5. PLATELET AGGREGATION INHIBITORS [Concomitant]
  6. AMLODIPINE BESYLATE [Concomitant]
     Indication: HYPERTENSION
     Dosage: 10 MG/DAY
     Route: 048
     Dates: start: 20110804
  7. PIOGLITAZONE [Concomitant]
     Indication: TYPE 2 DIABETES MELLITUS
     Dosage: 30 MG, QD
     Route: 048
     Dates: start: 20110804
  8. RAMIPRIL [Concomitant]
     Indication: HYPERTENSION
     Dosage: 1 DF,/DAY
     Route: 048
     Dates: start: 20110804
  9. ACE INHIBITOR [Concomitant]
  10. CALCIUM CHANNEL BLOCKERS [Concomitant]
  11. HMG COA REDUCTASE INHIBITORS [Concomitant]
  12. BETA BLOCKING AGENTS [Concomitant]
  13. SIMVASTATIN [Concomitant]
     Indication: CEREBROVASCULAR ACCIDENT
     Dosage: 20 MG/DAY
     Route: 048
     Dates: start: 20110804

REACTIONS (3)
  - HAEMATOCHEZIA [None]
  - BLOOD PRESSURE INCREASED [None]
  - RECTAL CANCER [None]
